FAERS Safety Report 13815429 (Version 1)
Quarter: 2017Q3

REPORT INFORMATION
  Report Type: Spontaneous
  Country: PT (occurrence: PT)
  Receive Date: 20170731
  Receipt Date: 20170731
  Transmission Date: 20171127
  Serious: Yes (Hospitalization, Other)
  Sender: FDA-Public Use
  Company Number: PT-MYLANLABS-2017M1044330

PATIENT

DRUGS (2)
  1. CIPROFLOXACIN. [Suspect]
     Active Substance: CIPROFLOXACIN
     Indication: INTRA-ABDOMINAL FLUID COLLECTION
     Dosage: UNK
  2. AMOXICILLIN/CLAVULANIC ACID [Suspect]
     Active Substance: AMOXICILLIN\CLAVULANIC ACID
     Indication: INTRA-ABDOMINAL FLUID COLLECTION
     Dosage: UNK

REACTIONS (5)
  - Blood urea increased [Recovered/Resolved]
  - Hypersensitivity [Recovered/Resolved]
  - Anuria [Recovered/Resolved]
  - Tubulointerstitial nephritis [Recovered/Resolved]
  - Acute kidney injury [Recovered/Resolved]
